FAERS Safety Report 18507946 (Version 2)
Quarter: 2020Q4

REPORT INFORMATION
  Report Type: Spontaneous
  Country: US (occurrence: US)
  Receive Date: 20201116
  Receipt Date: 20201211
  Transmission Date: 20210114
  Serious: No
  Sender: FDA-Public Use
  Company Number: US-ASTRAZENECA-2020SF22057

PATIENT
  Age: 55 Year
  Sex: Female

DRUGS (2)
  1. PULMICORT FLEXHALER [Suspect]
     Active Substance: BUDESONIDE
     Dosage: 180 MCG, 3 PUFFS, TWICE A DAY UNKNOWN
     Route: 055
  2. PULMICORT FLEXHALER [Suspect]
     Active Substance: BUDESONIDE
     Dosage: 180.0UG UNKNOWN
     Route: 055
     Dates: start: 20200901

REACTIONS (5)
  - Intentional device misuse [Unknown]
  - Device malfunction [Unknown]
  - Asthma [Unknown]
  - Product dose omission issue [Recovered/Resolved]
  - Product administration error [Unknown]
